FAERS Safety Report 11535918 (Version 1)
Quarter: 2015Q3

REPORT INFORMATION
  Report Type: Spontaneous
  Country: US (occurrence: US)
  Receive Date: 20150903
  Receipt Date: 20150903
  Transmission Date: 20151125
  Serious: No
  Sender: FDA-Public Use
  Company Number: US-ELI_LILLY_AND_COMPANY-US201105005232

PATIENT
  Age: 75 Year
  Sex: Female

DRUGS (5)
  1. METFORMIN [Concomitant]
     Active Substance: METFORMIN HYDROCHLORIDE
     Indication: PANCREATIC CARCINOMA
     Dosage: UNK
  2. HUMALOG [Suspect]
     Active Substance: INSULIN LISPRO
     Dosage: 32 U, OTHER
     Dates: start: 2006
  3. HUMALOG [Suspect]
     Active Substance: INSULIN LISPRO
     Dosage: 28 U, EACH EVENING
     Dates: start: 2006
  4. HUMALOG [Suspect]
     Active Substance: INSULIN LISPRO
     Indication: DIABETES MELLITUS
     Dosage: 26 U, EACH MORNING
     Dates: start: 2006
  5. LANTUS [Concomitant]
     Active Substance: INSULIN GLARGINE
     Dosage: UNK

REACTIONS (3)
  - Hypoacusis [Unknown]
  - Fear [Unknown]
  - Visual impairment [Unknown]

NARRATIVE: CASE EVENT DATE: 2008
